FAERS Safety Report 8571729-9 (Version None)
Quarter: 2012Q3

REPORT INFORMATION
  Report Type: 
  Country: None (occurrence: None)
  Receive Date: 20120724
  Receipt Date: 20120711
  Transmission Date: 20120928
  Serious: Yes (Other)
  Sender: FDA-Public Use
  Company Number: CRC-12-315

PATIENT
  Age: 40 Year
  Sex: Female
  Weight: 74.8435 kg

DRUGS (2)
  1. ATENOLOL [Concomitant]
  2. PHENYTOIN SODIUM CAPSULE, 100MG, MFG/LAB: SUN PH [Suspect]
     Indication: EPILEPSY
     Dosage: 300MG ORALLY
     Dates: start: 20120501

REACTIONS (3)
  - ANTICONVULSANT DRUG LEVEL INCREASED [None]
  - BLOOD GLUCOSE DECREASED [None]
  - BLOOD CALCIUM DECREASED [None]
